FAERS Safety Report 10089227 (Version 3)
Quarter: 2014Q2

REPORT INFORMATION
  Report Type: Spontaneous
  Country: JP (occurrence: None)
  Receive Date: 20140417
  Receipt Date: 20140613
  Transmission Date: 20141212
  Serious: Yes (Death, Other)
  Sender: FDA-Public Use
  Company Number: ABR_01569_2014

PATIENT
  Age: 35 Year
  Sex: Female

DRUGS (1)
  1. GLIADEL (GLIADEL-CARMUSTINE) 7.7 MG (NOT SPECIFIED) [Suspect]
     Indication: MALIGNANT GLIOMA
     Dosage: (8 DF 1X INTRACEREBRAL)
     Dates: start: 20130712

REACTIONS (4)
  - Brain oedema [None]
  - Malignant glioma [None]
  - Malignant neoplasm progression [None]
  - Procedural complication [None]
